FAERS Safety Report 11928840 (Version 3)
Quarter: 2016Q1

REPORT INFORMATION
  Report Type: Spontaneous
  Country: AT (occurrence: AT)
  Receive Date: 20160119
  Receipt Date: 20160303
  Transmission Date: 20160526
  Serious: Yes (Life-Threatening, Hospitalization, Other)
  Sender: FDA-Public Use
  Company Number: AT-009507513-1601AUT004929

PATIENT
  Age: 27 Year
  Sex: Female
  Weight: 62 kg

DRUGS (6)
  1. SANDIMMUN [Concomitant]
     Active Substance: CYCLOSPORINE
  2. VIROPEL [Concomitant]
  3. WELLVONE [Concomitant]
     Active Substance: ATOVAQUONE
  4. METHOTREXATE [Concomitant]
     Active Substance: METHOTREXATE
  5. TAVANIC [Concomitant]
     Active Substance: LEVOFLOXACIN
  6. NOXAFIL [Suspect]
     Active Substance: POSACONAZOLE
     Indication: ANTIFUNGAL PROPHYLAXIS
     Dosage: 600 MG (3*5ML)
     Route: 048
     Dates: start: 20130503, end: 20130518

REACTIONS (2)
  - Systemic candida [Recovered/Resolved]
  - Drug ineffective [Unknown]

NARRATIVE: CASE EVENT DATE: 20130518
